FAERS Safety Report 5351324-5 (Version None)
Quarter: 2007Q2

REPORT INFORMATION
  Report Type: 
  Country: None (occurrence: None)
  Receive Date: 20070608
  Receipt Date: 20070530
  Transmission Date: 20071010
  Serious: Yes (Other)
  Sender: FDA-Public Use
  Company Number: FR-PFIZER INC-2007044669

PATIENT
  Sex: Male

DRUGS (1)
  1. XANAX [Suspect]

REACTIONS (4)
  - LUNG NEOPLASM MALIGNANT [None]
  - OVERDOSE [None]
  - PARAESTHESIA [None]
  - SENSORY LOSS [None]
